FAERS Safety Report 4570454-9 (Version None)
Quarter: 2005Q1

REPORT INFORMATION
  Report Type: 
  Country: None (occurrence: None)
  Receive Date: 20050204
  Receipt Date: 20050127
  Transmission Date: 20050727
  Serious: Yes (Hospitalization)
  Sender: FDA-Public Use
  Company Number: US-JNJFOC-20050200056

PATIENT
  Age: 88 Year
  Sex: Male

DRUGS (3)
  1. RISPERDAL [Suspect]
     Indication: DRUG USE FOR UNKNOWN INDICATION
  2. PROTONIX [Concomitant]
  3. XOPENEX [Concomitant]

REACTIONS (2)
  - BILIARY TRACT DISORDER [None]
  - HEPATITIS CHOLESTATIC [None]
